FAERS Safety Report 10243162 (Version 1)
Quarter: 2014Q2

REPORT INFORMATION
  Report Type: Spontaneous
  Country: US (occurrence: None)
  Receive Date: 20140616
  Receipt Date: 20140616
  Transmission Date: 20141212
  Serious: Yes (Life-Threatening, Hospitalization)
  Sender: FDA-Public Use
  Company Number: None

PATIENT
  Age: 79 Year
  Sex: Female
  Weight: 55 kg

DRUGS (4)
  1. SSKI [Suspect]
     Indication: SCAN THYROID GLAND
     Dosage: TAKE AS DIRECTED ?ORAL ?
     Route: 048
     Dates: start: 20140613, end: 20140613
  2. ALPRAZOLAM [Concomitant]
  3. ASPIRIN [Concomitant]
  4. SPIRONOLACTONE [Concomitant]

REACTIONS (7)
  - Accidental overdose [None]
  - Nausea [None]
  - Frequent bowel movements [None]
  - Urinary incontinence [None]
  - Syncope [None]
  - Atrioventricular block complete [None]
  - Haemodialysis [None]
